FAERS Safety Report 4956739-2 (Version None)
Quarter: 2006Q1

REPORT INFORMATION
  Report Type: 
  Country: None (occurrence: None)
  Receive Date: 20060329
  Receipt Date: 20060317
  Transmission Date: 20060701
  Serious: Yes (Hospitalization)
  Sender: FDA-Public Use
  Company Number: JP-ROCHE-441380

PATIENT
  Age: 66 Year
  Sex: Female

DRUGS (3)
  1. PEGASYS [Suspect]
     Route: 058
     Dates: start: 20050914
  2. PEGASYS [Suspect]
     Route: 058
     Dates: start: 20051130, end: 20060111
  3. PEGASYS [Suspect]
     Route: 058
     Dates: end: 20060308

REACTIONS (1)
  - STEVENS-JOHNSON SYNDROME [None]
